FAERS Safety Report 8211034-3 (Version None)
Quarter: 2012Q1

REPORT INFORMATION
  Report Type: 
  Country: None (occurrence: None)
  Receive Date: 20120315
  Receipt Date: 20120308
  Transmission Date: 20120608
  Serious: Yes (Death, Hospitalization, Other)
  Sender: FDA-Public Use
  Company Number: PHHY2012NL009112

PATIENT
  Sex: Male

DRUGS (4)
  1. ZOMETA [Suspect]
     Dosage: 4 MG/100 ML, ONCE PER 21 DAYS
     Dates: start: 20120110
  2. ZOMETA [Suspect]
     Dosage: 4 MG/100 ML, ONCE PER 21 DAYS
     Dates: start: 20120131
  3. ZOMETA [Suspect]
     Indication: PROSTATE CANCER METASTATIC
     Dosage: 4 MG/100 ML, ONCE PER 21 DAYS
     Dates: start: 20101129
  4. ZOMETA [Suspect]
     Dosage: UNK UKN, UNK
     Route: 042
     Dates: start: 20120223, end: 20120223

REACTIONS (3)
  - NEOPLASM MALIGNANT [None]
  - TERMINAL STATE [None]
  - NEOPLASM PROGRESSION [None]
